FAERS Safety Report 9990888 (Version 1)
Quarter: 2014Q1

REPORT INFORMATION
  Report Type: Spontaneous
  Country: US (occurrence: None)
  Receive Date: 20140307
  Receipt Date: 20140307
  Transmission Date: 20141002
  Serious: Yes (Hospitalization)
  Sender: FDA-Public Use
  Company Number: None

PATIENT
  Age: 61 Year
  Sex: Male
  Weight: 109.3 kg

DRUGS (11)
  1. DIVALPROEX [Suspect]
     Indication: MOOD ALTERED
     Route: 048
     Dates: start: 201309, end: 201311
  2. RISPERIDONE [Suspect]
     Indication: PSYCHOTIC DISORDER
     Route: 048
     Dates: start: 201310, end: 201311
  3. TRAZODONE [Suspect]
     Indication: INSOMNIA
  4. ASPIRIN [Concomitant]
  5. ATORVASTATIN [Concomitant]
  6. DOCUSATE [Concomitant]
  7. LEVOTHYROXINE [Concomitant]
  8. MVI - MINERALS [Concomitant]
  9. OLANZEPINE [Concomitant]
  10. PROPRANOLOL [Concomitant]
  11. SENNA [Concomitant]

REACTIONS (4)
  - Grand mal convulsion [None]
  - Hyponatraemia [None]
  - Therapy change [None]
  - Unevaluable event [None]
